FAERS Safety Report 6415758-X (Version None)
Quarter: 2009Q4

REPORT INFORMATION
  Report Type: 
  Country: None (occurrence: None)
  Receive Date: 20091027
  Receipt Date: 20091021
  Transmission Date: 20100525
  Serious: Yes (Other)
  Sender: FDA-Public Use
  Company Number: US-ROXANE LABORATORIES, INC.-2009-RO-01081RO

PATIENT
  Age: 22 Year
  Sex: Female

DRUGS (4)
  1. PREDNISONE TAB [Suspect]
     Indication: SYSTEMIC LUPUS ERYTHEMATOSUS
  2. CYCLOPHOSPHAMIDE [Suspect]
     Indication: SYSTEMIC LUPUS ERYTHEMATOSUS
  3. MYCOPHENOLATE MOFETIL [Suspect]
     Indication: SYSTEMIC LUPUS ERYTHEMATOSUS
  4. HYDROXYCHLOROQUINE SULFATE [Suspect]
     Indication: SYSTEMIC LUPUS ERYTHEMATOSUS

REACTIONS (3)
  - BONE MARROW ISCHAEMIA [None]
  - OSTEONECROSIS [None]
  - SCAR [None]
